FAERS Safety Report 13401940 (Version 1)
Quarter: 2017Q2

REPORT INFORMATION
  Report Type: Spontaneous
  Country: ES (occurrence: ES)
  Receive Date: 20170404
  Receipt Date: 20170404
  Transmission Date: 20170830
  Serious: Yes (Other)
  Sender: FDA-Public Use
  Company Number: ES-BAYER-2017-056425

PATIENT
  Sex: Female

DRUGS (1)
  1. ADIRO 100 MG [Suspect]
     Active Substance: ASPIRIN
     Indication: PREGNANCY
     Dosage: UNK
     Route: 048
     Dates: start: 20160613

REACTIONS (2)
  - Bronchospasm [Recovered/Resolved]
  - Choking [Recovered/Resolved]

NARRATIVE: CASE EVENT DATE: 20170219
